FAERS Safety Report 11353737 (Version 1)
Quarter: 2015Q3

REPORT INFORMATION
  Report Type: Spontaneous
  Country: US (occurrence: US)
  Receive Date: 20150807
  Receipt Date: 20150807
  Transmission Date: 20151125
  Serious: No
  Sender: FDA-Public Use
  Company Number: US-JNJFOC-20150506406

PATIENT
  Age: 30 Year
  Sex: Male
  Weight: 70.31 kg

DRUGS (3)
  1. MENS ROGAINE EXTRA STRENGTH [Suspect]
     Active Substance: MINOXIDIL
     Indication: ALOPECIA
     Dosage: HALF A CAP
     Route: 061
  2. PENICILLIN [Concomitant]
     Active Substance: PENICILLIN
     Indication: HYPERSENSITIVITY
     Dosage: INTERVAL: 2 DAYS
     Route: 065
     Dates: start: 20150506
  3. MENS ROGAINE EXTRA STRENGTH [Suspect]
     Active Substance: MINOXIDIL
     Route: 061

REACTIONS (3)
  - Pruritus [Recovering/Resolving]
  - Nervousness [Recovering/Resolving]
  - Rash macular [Recovering/Resolving]
